FAERS Safety Report 6255376-X (Version None)
Quarter: 2009Q3

REPORT INFORMATION
  Report Type: 
  Country: None (occurrence: None)
  Receive Date: 20090702
  Receipt Date: 20090626
  Transmission Date: 20100115
  Serious: Yes (Hospitalization, Other)
  Sender: FDA-Public Use
  Company Number: US-AMGEN-US353395

PATIENT
  Sex: Female

DRUGS (4)
  1. NEULASTA [Suspect]
     Indication: CHEMOTHERAPY
     Dates: start: 20090401
  2. DEXAMETHASONE [Concomitant]
  3. COMPAZINE [Concomitant]
  4. UNSPECIFIED ANTINEOPLASTIC AGENT [Concomitant]
     Route: 033
     Dates: start: 20090401, end: 20090401

REACTIONS (6)
  - BLOOD PRESSURE DECREASED [None]
  - DIZZINESS [None]
  - HAEMORRHAGE [None]
  - RENAL IMPAIRMENT [None]
  - SPLENIC RUPTURE [None]
  - THROMBOSIS [None]
